FAERS Safety Report 10290440 (Version 4)
Quarter: 2014Q3

REPORT INFORMATION
  Report Type: Spontaneous
  Country: IT (occurrence: None)
  Receive Date: 20140708
  Receipt Date: 20140801
  Transmission Date: 20150326
  Serious: Yes (Life-Threatening, Hospitalization)
  Sender: FDA-Public Use
  Company Number: AUR-APL-2014-07071

PATIENT
  Age: 72 Year
  Sex: Male

DRUGS (11)
  1. PREDNISONE (PREDNISONE) [Suspect]
     Active Substance: PREDNISONE
     Indication: PRODUCT USED FOR UNKNOWN INDICATION
  2. FILGRASTIM (FILGRASTIM) [Suspect]
     Active Substance: FILGRASTIM
     Indication: PRODUCT USED FOR UNKNOWN INDICATION
  3. RITUXIMAB (RITUXIMAB) [Concomitant]
     Active Substance: RITUXIMAB
  4. FLUCONAZOLE (FLUCONAZOLE) UNKNOWN [Suspect]
     Active Substance: FLUCONAZOLE
     Indication: FEBRILE NEUTROPENIA
     Route: 048
     Dates: end: 20130505
  5. CEFTRIAXONE DISODIUM [Concomitant]
     Active Substance: CEFTRIAXONE
  6. LEVOFLOXACIN [Suspect]
     Active Substance: LEVOFLOXACIN
     Indication: PYREXIA
     Route: 048
     Dates: start: 20130308, end: 20130322
  7. ALLOPURINOL. [Suspect]
     Active Substance: ALLOPURINOL
     Indication: TUMOUR LYSIS SYNDROME
     Route: 048
     Dates: start: 20121228, end: 20130502
  8. HEPARIN SODIUM (HEPARIN SODIUM) [Concomitant]
     Active Substance: HEPARIN SODIUM
  9. LANSOPRAZOLE (LANSOPRAZOLE) [Suspect]
     Active Substance: LANSOPRAZOLE
     Indication: PRODUCT USED FOR UNKNOWN INDICATION
  10. OMEPRAZOLE (OMEPRAZOLE) [Concomitant]
     Active Substance: OMEPRAZOLE
  11. ACICLOVIR (ACICLOVIR) [Concomitant]
     Active Substance: ACYCLOVIR

REACTIONS (2)
  - Pulmonary embolism [None]
  - Febrile neutropenia [None]

NARRATIVE: CASE EVENT DATE: 20130323
